FAERS Safety Report 15074813 (Version 1)
Quarter: 2018Q2

REPORT INFORMATION
  Report Type: Spontaneous
  Country: US (occurrence: US)
  Receive Date: 20180627
  Receipt Date: 20180627
  Transmission Date: 20180711
  Serious: No
  Sender: FDA-Public Use
  Company Number: US-SAOL THERAPEUTICS-2017SAO01304

PATIENT
  Age: 55 Year
  Sex: Male
  Weight: 88.44 kg

DRUGS (19)
  1. BUPIVACAINE. [Suspect]
     Active Substance: BUPIVACAINE
     Dosage: 0.24 MG, \DAY
     Dates: start: 20170622, end: 20170725
  2. IBUPROFEN. [Concomitant]
     Active Substance: IBUPROFEN
  3. LISINOPRIL-HYDROCHLOROTHIAZIDE [Concomitant]
     Active Substance: HYDROCHLOROTHIAZIDE\LISINOPRIL
     Route: 048
  4. DILAUDID [Suspect]
     Active Substance: HYDROMORPHONE HYDROCHLORIDE
     Dosage: 1.2 MG, \DAY
     Route: 037
     Dates: start: 20170725, end: 20170809
  5. ALEVE [Concomitant]
     Active Substance: NAPROXEN SODIUM
  6. DILAUDID [Suspect]
     Active Substance: HYDROMORPHONE HYDROCHLORIDE
     Dosage: 1 MG, \DAY
     Dates: start: 20170809
  7. BACLOFEN. [Suspect]
     Active Substance: BACLOFEN
     Dosage: 25 ?G, \DAY
     Route: 037
     Dates: start: 20170622, end: 20170725
  8. LIORESAL [Suspect]
     Active Substance: BACLOFEN
     Dosage: 35 ?G, \DAY
     Route: 037
     Dates: start: 20170809
  9. DILAUDID [Suspect]
     Active Substance: HYDROMORPHONE HYDROCHLORIDE
     Dosage: 1 MG, \DAY
     Route: 037
     Dates: start: 20170622, end: 20170725
  10. BACLOFEN. [Suspect]
     Active Substance: BACLOFEN
     Dosage: 30 ?G, \DAY
     Route: 037
     Dates: start: 20170725, end: 20170809
  11. PERCOCET [Concomitant]
     Active Substance: ACETAMINOPHEN\OXYCODONE HYDROCHLORIDE
  12. BUPIVACAINE. [Suspect]
     Active Substance: BUPIVACAINE
     Dosage: 0.29 MG, \DAY
     Dates: start: 20170725, end: 20170809
  13. BUPIVACAINE. [Suspect]
     Active Substance: BUPIVACAINE
     Dosage: 0.22 MG, \DAY
     Dates: start: 20170809
  14. ATORVASTATIN [Concomitant]
     Active Substance: ATORVASTATIN
     Route: 048
  15. CYCLOBENZAPRINE. [Concomitant]
     Active Substance: CYCLOBENZAPRINE
  16. VICODIN [Suspect]
     Active Substance: ACETAMINOPHEN\HYDROCODONE BITARTRATE
     Route: 048
  17. BACLOFEN. [Concomitant]
     Active Substance: BACLOFEN
     Route: 048
  18. GABAPENTIN. [Concomitant]
     Active Substance: GABAPENTIN
     Route: 048
  19. FLOMAX [Concomitant]
     Active Substance: TAMSULOSIN HYDROCHLORIDE
     Route: 048

REACTIONS (9)
  - Pallor [Recovering/Resolving]
  - Muscle spasms [Unknown]
  - Off label use [Not Recovered/Not Resolved]
  - Vomiting [Recovering/Resolving]
  - Malaise [Recovering/Resolving]
  - Dizziness [Unknown]
  - Unevaluable event [Unknown]
  - Nausea [Recovering/Resolving]
  - Drug ineffective for unapproved indication [Unknown]

NARRATIVE: CASE EVENT DATE: 2017
